FAERS Safety Report 5716512-4 (Version None)
Quarter: 2008Q2

REPORT INFORMATION
  Report Type: 
  Country: None (occurrence: None)
  Receive Date: 20080415
  Receipt Date: 20080404
  Transmission Date: 20081010
  Serious: Yes (Hospitalization)
  Sender: FDA-Public Use
  Company Number: GAM-050-08-FR

PATIENT
  Age: 54 Year
  Sex: Female

DRUGS (5)
  1. OCTAGAM 5% (HUMAN NORMAL IMMUNOGLOBULIN FOR INTRAVENOUS ADMINISTRATION [Suspect]
     Indication: DEMYELINATING POLYNEUROPATHY
     Dosage: 30 G I.V.
     Route: 042
     Dates: start: 20080220, end: 20080224
  2. OCTAGAM 5% (HUMAN NORMAL IMMUNOGLOBULIN FOR INTRAVENOUS ADMINISTRATION [Suspect]
  3. INEGY (SIMVASTATIN) [Concomitant]
  4. INSULIN (INSULIN) [Concomitant]
  5. CLONAZEPAM [Concomitant]

REACTIONS (2)
  - NEUTROPENIA [None]
  - WHITE BLOOD CELL COUNT DECREASED [None]
